FAERS Safety Report 9697997 (Version 3)
Quarter: 2014Q1

REPORT INFORMATION
  Report Type: Report from Study
  Country: US (occurrence: US)
  Receive Date: 20131120
  Receipt Date: 20140122
  Transmission Date: 20141002
  Serious: Yes (Hospitalization)
  Sender: FDA-Public Use
  Company Number: US-SA-2013SA117444

PATIENT
  Age: 86 Year
  Sex: Male
  Weight: 70.4 kg

DRUGS (17)
  1. SARGRAMOSTIM [Suspect]
     Indication: MALIGNANT MELANOMA
     Dosage: D1-D14 Q21D
     Route: 058
     Dates: start: 20130827, end: 20131101
  2. IPILIMUMAB [Suspect]
     Indication: MALIGNANT MELANOMA
     Dosage: 10 MG/KG Q21 DAYS
     Route: 042
     Dates: start: 20130827, end: 20130827
  3. VITAMIN D3 [Concomitant]
  4. VICODIN [Concomitant]
  5. SILODOSIN [Concomitant]
     Route: 048
  6. ROPINIROLE [Concomitant]
     Route: 048
  7. METOPROLOL TARTRATE [Concomitant]
     Route: 048
  8. HERBAL PREPARATION [Concomitant]
  9. MELATONIN [Concomitant]
     Dosage: FREQUENCY: DAILY AT NIGHT
  10. RIVAROXABAN [Concomitant]
  11. COLESTYRAMINE [Concomitant]
  12. COLESTYRAMINE [Concomitant]
     Route: 048
  13. KRILL OIL [Concomitant]
  14. FLAXSEED OIL [Concomitant]
  15. FISH OIL [Concomitant]
  16. HYDRALAZINE [Concomitant]
     Indication: HYPERTENSION
     Route: 042
  17. ASPIRIN [Concomitant]
     Route: 048

REACTIONS (2)
  - Hyperthyroidism [Recovered/Resolved]
  - Atrial fibrillation [Recovered/Resolved]
